FAERS Safety Report 13551049 (Version 3)
Quarter: 2017Q2

REPORT INFORMATION
  Report Type: Spontaneous
  Country: US (occurrence: US)
  Receive Date: 20170516
  Receipt Date: 20170608
  Transmission Date: 20170830
  Serious: Yes (Hospitalization)
  Sender: FDA-Public Use
  Company Number: US-ASTRAZENECA-2017SE49959

PATIENT
  Age: 1014 Month
  Sex: Female

DRUGS (1)
  1. TUDORZA PRESSAIR [Suspect]
     Active Substance: ACLIDINIUM BROMIDE
     Indication: CHRONIC OBSTRUCTIVE PULMONARY DISEASE
     Route: 055

REACTIONS (10)
  - Pneumonia [Recovered/Resolved]
  - Diabetes mellitus [Unknown]
  - Cardiac failure congestive [Unknown]
  - Intentional product misuse [Unknown]
  - Device malfunction [Unknown]
  - Clostridium difficile infection [Recovered/Resolved]
  - Dyspnoea [Recovered/Resolved]
  - Bronchitis [Recovered/Resolved]
  - Neuropathy peripheral [Unknown]
  - Product packaging quantity issue [Unknown]

NARRATIVE: CASE EVENT DATE: 201611
